FAERS Safety Report 17005660 (Version 1)
Quarter: 2019Q4

REPORT INFORMATION
  Report Type: Spontaneous
  Country: EG (occurrence: EG)
  Receive Date: 20191107
  Receipt Date: 20191107
  Transmission Date: 20200122
  Serious: Yes (Disabling)
  Sender: FDA-Public Use
  Company Number: EG-PFM-2019-13665

PATIENT

DRUGS (4)
  1. NAVELBINE [Suspect]
     Active Substance: VINORELBINE TARTRATE
     Indication: LUNG CANCER METASTATIC
     Dosage: 50 MG, EVERY 21 DAYS
     Route: 042
  2. NAVELBINE [Suspect]
     Active Substance: VINORELBINE TARTRATE
     Indication: BREAST CANCER METASTATIC
  3. UTORAL [Suspect]
     Active Substance: FLUOROURACIL
     Indication: BREAST CANCER METASTATIC
     Dosage: 1500 MG, UNK
     Route: 042
  4. UTORAL [Suspect]
     Active Substance: FLUOROURACIL
     Indication: LUNG CANCER METASTATIC

REACTIONS (3)
  - Skin burning sensation [Not Recovered/Not Resolved]
  - Injection site abscess [Not Recovered/Not Resolved]
  - Vein discolouration [Not Recovered/Not Resolved]
